FAERS Safety Report 24760303 (Version 1)
Quarter: 2024Q4

REPORT INFORMATION
  Report Type: Spontaneous
  Country: US (occurrence: None)
  Receive Date: 20241219
  Receipt Date: 20241219
  Transmission Date: 20250115
  Serious: Yes (Life-Threatening, Other)
  Sender: Public
  Company Number: None

PATIENT
  Age: 25 Year
  Sex: Male
  Weight: 139.05 kg

DRUGS (1)
  1. REMICADE [Suspect]
     Active Substance: INFLIXIMAB
     Indication: Colitis ulcerative
     Dosage: OTHER FREQUENCY : 8 WEEKS;?
     Route: 041
     Dates: start: 20221109, end: 20241219

REACTIONS (9)
  - Infusion related reaction [None]
  - Hypotension [None]
  - Swelling face [None]
  - Rash [None]
  - Urticaria [None]
  - Flushing [None]
  - Nausea [None]
  - Tachycardia [None]
  - Hyperhidrosis [None]

NARRATIVE: CASE EVENT DATE: 20241219
